FAERS Safety Report 9473531 (Version 1)
Quarter: 2013Q3

REPORT INFORMATION
  Report Type: Spontaneous
  Country: US (occurrence: US)
  Receive Date: 20130823
  Receipt Date: 20130823
  Transmission Date: 20140515
  Serious: No
  Sender: FDA-Public Use
  Company Number: US-GALDERMA-US13001553

PATIENT
  Age: 52 Year
  Sex: Female

DRUGS (5)
  1. METROGEL (METRONIDAZOLE) GEL, 1% [Suspect]
     Indication: ROSACEA
     Route: 061
     Dates: start: 20130503, end: 20130515
  2. CLARITIN [Concomitant]
     Indication: MULTIPLE ALLERGIES
     Route: 048
  3. FLONASE [Concomitant]
     Indication: MULTIPLE ALLERGIES
     Route: 045
  4. PATADAY [Concomitant]
     Indication: MULTIPLE ALLERGIES
     Route: 047
  5. BENADRYL [Concomitant]
     Indication: SLEEP DISORDER
     Route: 048
     Dates: start: 20130514, end: 20130515

REACTIONS (6)
  - Vertigo [Not Recovered/Not Resolved]
  - Headache [Not Recovered/Not Resolved]
  - Tongue coated [Not Recovered/Not Resolved]
  - Dizziness [Not Recovered/Not Resolved]
  - Nausea [Not Recovered/Not Resolved]
  - Condition aggravated [Not Recovered/Not Resolved]
